FAERS Safety Report 6137485-9 (Version None)
Quarter: 2009Q1

REPORT INFORMATION
  Report Type: 
  Country: None (occurrence: None)
  Receive Date: 20090326
  Receipt Date: 20090316
  Transmission Date: 20090719
  Serious: Yes (Other)
  Sender: FDA-Public Use
  Company Number: 220023

PATIENT
  Age: 49 Year
  Sex: Female

DRUGS (3)
  1. CYTARABINE [Suspect]
     Indication: ACUTE MYELOID LEUKAEMIA
     Dosage: 3 G/M2; INTRAVENOUS
     Route: 042
  2. DAUNORUBICIN HCL [Suspect]
     Indication: ACUTE MYELOID LEUKAEMIA
  3. MITOXANTRONE [Suspect]
     Indication: ACUTE MYELOID LEUKAEMIA
     Dosage: 10 MG/M2; INTRAVENOUS
     Route: 042

REACTIONS (4)
  - DRUG TOXICITY [None]
  - LUNG NEOPLASM [None]
  - ORGANISING PNEUMONIA [None]
  - VIRAL INFECTION [None]
